FAERS Safety Report 10283617 (Version 1)
Quarter: 2014Q3

REPORT INFORMATION
  Report Type: Spontaneous
  Country: SE (occurrence: SE)
  Receive Date: 20140708
  Receipt Date: 20140708
  Transmission Date: 20150326
  Serious: Yes (Other)
  Sender: FDA-Public Use
  Company Number: SE-AMGEN-SWESP2014050706

PATIENT
  Age: 54 Year
  Sex: Male

DRUGS (7)
  1. RIMACTAN [Concomitant]
     Active Substance: RIFAMPIN
     Indication: DYSPNOEA
     Dosage: UNK
  2. TRIATEC                            /00116401/ [Concomitant]
     Active Substance: HYDROCHLOROTHIAZIDE
     Indication: CARDIAC DISORDER
     Dosage: UNK
  3. NEOTIGASON [Concomitant]
     Active Substance: ACITRETIN
     Dosage: UNK
  4. ENBREL [Suspect]
     Active Substance: ETANERCEPT
     Indication: PSORIASIS
     Dosage: 25 MG, 2X/WEEK
     Route: 065
     Dates: start: 200401
  5. EMCONCOR [Concomitant]
     Active Substance: BISOPROLOL FUMARATE
     Indication: CARDIAC DISORDER
     Dosage: UNK
  6. ENBREL [Suspect]
     Active Substance: ETANERCEPT
     Dosage: 50 MG, 2X/WEEK
     Route: 065
  7. ENBREL [Suspect]
     Active Substance: ETANERCEPT
     Dosage: 25 MG, THREE TIMES PER WEEK
     Route: 065
     Dates: start: 2005

REACTIONS (5)
  - Condition aggravated [Unknown]
  - Pulmonary embolism [Unknown]
  - Post procedural complication [Unknown]
  - Weight decreased [Unknown]
  - Prostate cancer [Unknown]

NARRATIVE: CASE EVENT DATE: 200406
